FAERS Safety Report 5987023-6 (Version None)
Quarter: 2008Q4

REPORT INFORMATION
  Report Type: 
  Country: None (occurrence: None)
  Receive Date: 20081209
  Receipt Date: 20081202
  Transmission Date: 20090506
  Serious: Yes (Other)
  Sender: FDA-Public Use
  Company Number: B0548632A

PATIENT
  Age: 36 Year
  Sex: Male

DRUGS (2)
  1. VALTREX [Suspect]
     Indication: HERPES ZOSTER
     Dosage: 1000MG THREE TIMES PER DAY
     Route: 048
     Dates: start: 20081120, end: 20081126
  2. MECOBALAMIN [Concomitant]
     Route: 048
     Dates: start: 20081120, end: 20081126

REACTIONS (1)
  - ARRHYTHMIA [None]
